FAERS Safety Report 21856160 (Version 1)
Quarter: 2023Q1

REPORT INFORMATION
  Report Type: Spontaneous
  Country: None (occurrence: US)
  Receive Date: 20230112
  Receipt Date: 20230112
  Transmission Date: 20230418
  Serious: No
  Sender: FDA-Public Use
  Company Number: US-Xttrium Laboratories, Inc-2136673

PATIENT
  Age: 77 Year
  Sex: Female

DRUGS (1)
  1. CHLORHEXIDINE GLUCONATE [Suspect]
     Active Substance: CHLORHEXIDINE GLUCONATE
     Indication: Aphthous ulcer
     Route: 048

REACTIONS (5)
  - Glossodynia [Recovered/Resolved]
  - Tongue geographic [Recovered/Resolved]
  - Parosmia [Recovered/Resolved]
  - Ageusia [Not Recovered/Not Resolved]
  - Sputum decreased [Recovered/Resolved]
